FAERS Safety Report 18894953 (Version 1)
Quarter: 2021Q1

REPORT INFORMATION
  Report Type: Spontaneous
  Country: US (occurrence: US)
  Receive Date: 20210216
  Receipt Date: 20210216
  Transmission Date: 20210420
  Serious: No
  Sender: FDA-Public Use
  Company Number: US-SA-2021SA048672

PATIENT
  Age: 80 Year
  Sex: Male

DRUGS (22)
  1. ASPIRIN [ACETYLSALICYLIC ACID] [Concomitant]
     Active Substance: ASPIRIN
  2. MELATONIN [Concomitant]
     Active Substance: MELATONIN
  3. GARLIC [ALLIUM SATIVUM] [Concomitant]
     Active Substance: GARLIC
  4. GRAPESEED [Concomitant]
  5. VITAMIN D3 [Concomitant]
     Active Substance: CHOLECALCIFEROL
  6. GLUCOSAMINE + CHONDORITIN [Concomitant]
  7. SELENIUM [Concomitant]
     Active Substance: SELENIUM
  8. ACIDOPHILUS [Concomitant]
     Active Substance: LACTOBACILLUS ACIDOPHILUS
  9. SAW PALMETTO [SERENOA REPENS] [Concomitant]
  10. ASTAXANTHIN [Concomitant]
     Active Substance: ASTAXANTHIN
  11. EVENING PRIMROSE OIL [OENOTHERA BIENNIS OIL] [Concomitant]
  12. LUTEIN [XANTOFYL] [Concomitant]
  13. MILK THISTLE [SILYBUM MARIANUM] [Concomitant]
     Active Substance: DIETARY SUPPLEMENT\HERBALS\MILK THISTLE
  14. VITAMIN B COMPLEX [Concomitant]
     Active Substance: CYANOCOBALAMIN\DEXPANTHENOL\NIACINAMIDE\PYRIDOXINE HYDROCHLORIDE\RIBOFLAVIN 5^-PHOSPHATE SODIUM\THIAMINE HYDROCHLORIDE\VITAMIN B COMPLEX
  15. CYANOCOBALAMIN. [Concomitant]
     Active Substance: CYANOCOBALAMIN
  16. TURMERIC [CURCUMA LONGA] [Concomitant]
     Active Substance: HERBALS\TURMERIC
  17. GINKGO BILOBA [Concomitant]
     Active Substance: GINKGO
  18. VITAMIN C [Concomitant]
     Active Substance: ASCORBIC ACID
  19. ZINC. [Concomitant]
     Active Substance: ZINC
  20. VITAMIN E [Concomitant]
     Active Substance: .ALPHA.-TOCOPHEROL
  21. AUBAGIO [Suspect]
     Active Substance: TERIFLUNOMIDE
     Indication: MULTIPLE SCLEROSIS
     Dosage: 14 MG, QD
     Route: 048
     Dates: start: 20201101
  22. MAGNESIUM [Concomitant]
     Active Substance: MAGNESIUM

REACTIONS (3)
  - Alopecia [Not Recovered/Not Resolved]
  - Dry eye [Recovered/Resolved]
  - Headache [Recovered/Resolved]
